FAERS Safety Report 14159490 (Version 1)
Quarter: 2017Q4

REPORT INFORMATION
  Report Type: Spontaneous
  Country: US (occurrence: US)
  Receive Date: 20171106
  Receipt Date: 20171106
  Transmission Date: 20180321
  Serious: No
  Sender: FDA-Public Use
  Company Number: US-BRISTOL-MYERS SQUIBB COMPANY-BMS-2017-098416

PATIENT
  Sex: Male

DRUGS (3)
  1. DIFLUCAN [Concomitant]
     Active Substance: FLUCONAZOLE
     Indication: CANDIDA INFECTION
     Route: 065
  2. DIFLUCAN [Concomitant]
     Active Substance: FLUCONAZOLE
     Indication: CYSTITIS
     Route: 065
  3. ELIQUIS [Suspect]
     Active Substance: APIXABAN
     Indication: CEREBROVASCULAR ACCIDENT PROPHYLAXIS
     Dosage: 2.5 MG, BID
     Route: 065

REACTIONS (2)
  - Cystitis [Unknown]
  - Candida infection [Unknown]
